FAERS Safety Report 11937140 (Version 2)
Quarter: 2016Q1

REPORT INFORMATION
  Report Type: Spontaneous
  Country: FR (occurrence: FR)
  Receive Date: 20160121
  Receipt Date: 20160215
  Transmission Date: 20160526
  Serious: Yes (Other)
  Sender: FDA-Public Use
  Company Number: ALCN2015FR008142

PATIENT
  Age: 53 Year
  Sex: Male

DRUGS (2)
  1. TRAVATAN [Suspect]
     Active Substance: TRAVOPROST
     Indication: PRODUCT USED FOR UNKNOWN INDICATION
     Dosage: 1 GTT, QHS
     Route: 047
  2. CARTEOL [Suspect]
     Active Substance: CARTEOLOL
     Indication: PRODUCT USED FOR UNKNOWN INDICATION
     Dosage: 1 GTT, QD
     Route: 047

REACTIONS (1)
  - Herpes ophthalmic [Recovering/Resolving]

NARRATIVE: CASE EVENT DATE: 20151214
